FAERS Safety Report 20328604 (Version 2)
Quarter: 2022Q1

REPORT INFORMATION
  Report Type: Spontaneous
  Country: NL (occurrence: NL)
  Receive Date: 20220112
  Receipt Date: 20220120
  Transmission Date: 20220423
  Serious: Yes (Hospitalization, Other)
  Sender: FDA-Public Use
  Company Number: None

PATIENT
  Sex: Male

DRUGS (7)
  1. OLANZAPINE [Suspect]
     Active Substance: OLANZAPINE
     Indication: Nausea
     Dosage: 10 MILLIGRAM DAILY; OLANZAPINE MELT TABLET 5MG / BRAND NAME NOT SPECIFIED,2 X A DAY 1 PIECE
     Dates: start: 20211215, end: 20211221
  2. CAPECITABINE [Concomitant]
     Active Substance: CAPECITABINE
     Dosage: 500 MG (MILLIGRAM) , CAPECITABINE TABLET FO  , THERAPY START DATE AND END DATE : ASKU
  3. PERINDOPRIL ERBUMINE [Concomitant]
     Active Substance: PERINDOPRIL ERBUMINE
     Dosage: 4 MG (MILLIGRAM) , THERAPY START DATE AND END DATE : ASKU
  4. SPIRONOLACTONE [Concomitant]
     Active Substance: SPIRONOLACTONE
     Dosage: 12,5 MG (MILLIGRAM) , THERAPY START DATE AND END DATE : ASKU
  5. RIVAROXABAN [Concomitant]
     Active Substance: RIVAROXABAN
     Dosage: 20 MG (MILLIGRAM) , THERAPY START DATE AND END DATE : ASKU,RIVAROXABAN TABLET 20MG / BRAND NAME NOT
  6. METOPROLOL SUCCINATE [Concomitant]
     Active Substance: METOPROLOL SUCCINATE
     Dosage: 50 MG (MILLIGRAM) , THERAPY START DATE AND END DATE : ASKU , METOPROLOL TABLET MGA 50MG (SUCCINATE)
  7. ROSUVASTATIN [Concomitant]
     Active Substance: ROSUVASTATIN
     Dosage: 20 MG (MILLIGRAM) , THERAPY START DATE AND END DATE : ASKU

REACTIONS (3)
  - Delirium [Recovered/Resolved]
  - Urinary retention [Recovered/Resolved]
  - Renal impairment [Recovered/Resolved]
